FAERS Safety Report 5825273-X (Version None)
Quarter: 2008Q3

REPORT INFORMATION
  Report Type: 
  Country: None (occurrence: None)
  Receive Date: 20080722
  Receipt Date: 20080708
  Transmission Date: 20090109
  Serious: Yes (Disabling, Other)
  Sender: FDA-Public Use
  Company Number: 2008-180466-NL

PATIENT
  Sex: Male

DRUGS (14)
  1. REMERON SOLTAB [Suspect]
     Dosage: 30 MG ORAL, QHS
     Route: 048
  2. ACTIQ [Suspect]
     Indication: BACK PAIN
     Dosage: 400 UG BID BUCCAL
     Route: 002
     Dates: start: 20040330, end: 20041111
  3. ACTIQ [Suspect]
     Indication: PAIN IN EXTREMITY
     Dosage: 400 UG BID BUCCAL
     Route: 002
     Dates: start: 20040330, end: 20041111
  4. ACTIQ [Suspect]
     Indication: BACK PAIN
     Dosage: 600 UG BID BUCCAL
     Route: 002
     Dates: start: 20041112, end: 20050101
  5. ACTIQ [Suspect]
     Indication: PAIN IN EXTREMITY
     Dosage: 600 UG BID BUCCAL
     Route: 002
     Dates: start: 20041112, end: 20050101
  6. ACTIQ [Suspect]
     Indication: BACK PAIN
     Dosage: 600 UG QD BUCCAL
     Route: 002
     Dates: start: 20050101
  7. ACTIQ [Suspect]
     Indication: PAIN IN EXTREMITY
     Dosage: 600 UG QD BUCCAL
     Route: 002
     Dates: start: 20050101
  8. DURAGESIC-100 [Suspect]
     Indication: PAIN
     Dosage: 50 UG Q1HR TRANSDERMAL
     Route: 062
     Dates: end: 20040510
  9. DURAGESIC-100 [Suspect]
     Indication: PAIN
     Dosage: 25 UG Q1HR TRANSDERMAL
     Route: 062
  10. DURAGESIC-100 [Suspect]
     Indication: PAIN
     Dosage: 50 UG Q1HR TRANSDERMAL
     Route: 062
     Dates: start: 20040811, end: 20050101
  11. EFFEXOR [Suspect]
     Dosage: 75 MG ORAL, QAM
     Route: 048
     Dates: end: 20040528
  12. EFFEXOR [Suspect]
     Dosage: 150 MG ORAL, QAM
     Route: 048
     Dates: end: 20040529
  13. NEURONTIN [Suspect]
     Dosage: 600 MG TID ORAL
     Route: 048
  14. PARECOXIB SODIUM [Suspect]
     Dosage: 20 MG QD ORAL
     Route: 048

REACTIONS (11)
  - DRUG DEPENDENCE [None]
  - DRUG EFFECT DECREASED [None]
  - DRUG WITHDRAWAL SYNDROME [None]
  - ERECTILE DYSFUNCTION [None]
  - HEADACHE [None]
  - NASOPHARYNGITIS [None]
  - PHARMACEUTICAL PRODUCT COMPLAINT [None]
  - TOOTH FRACTURE [None]
  - TOOTH LOSS [None]
  - TOOTHACHE [None]
  - TREMOR [None]
